FAERS Safety Report 11232569 (Version 3)
Quarter: 2015Q3

REPORT INFORMATION
  Report Type: Spontaneous
  Country: US (occurrence: US)
  Receive Date: 20150701
  Receipt Date: 20150816
  Transmission Date: 20151125
  Serious: Yes (Hospitalization, Congenital Anomaly, Other)
  Sender: FDA-Public Use
  Company Number: US-APOTEX-2015AP008047

PATIENT

DRUGS (2)
  1. PAXIL [Suspect]
     Active Substance: PAROXETINE HYDROCHLORIDE
     Indication: ANXIETY
     Dosage: 30 MG, UNK
     Route: 064
  2. ELAVIL [Suspect]
     Active Substance: AMITRIPTYLINE HYDROCHLORIDE
     Indication: ANXIETY
     Dosage: 50 MG, Q.H.S.
     Route: 064

REACTIONS (6)
  - Premature baby [Unknown]
  - Foetal exposure during pregnancy [Unknown]
  - Heart disease congenital [Unknown]
  - Pulmonary valve stenosis congenital [Unknown]
  - Cardiac murmur [Unknown]
  - Eyelid haematoma [Unknown]
